FAERS Safety Report 4520249-7 (Version None)
Quarter: 2004Q4

REPORT INFORMATION
  Report Type: 
  Country: None (occurrence: None)
  Receive Date: 20041201
  Receipt Date: 20041201
  Transmission Date: 20050328
  Serious: Yes (Hospitalization, Disabling)
  Sender: FDA-Public Use
  Company Number: None

PATIENT
  Age: 63 Year
  Sex: Female
  Weight: 63.5036 kg

DRUGS (2)
  1. SYNTHROID [Suspect]
     Indication: HYPERTENSION
     Dosage: 100 MCG QD
  2. SYNTHROID [Suspect]
     Indication: HYPERTHYROIDISM
     Dosage: 100 MCG QD

REACTIONS (15)
  - ABDOMINAL PAIN [None]
  - ABNORMAL FAECES [None]
  - BLOOD GLUCOSE INCREASED [None]
  - CHEST PAIN [None]
  - DYSPEPSIA [None]
  - EMOTIONAL DISORDER [None]
  - FREQUENT BOWEL MOVEMENTS [None]
  - HEADACHE [None]
  - HEART RATE INCREASED [None]
  - HYPERTHYROIDISM [None]
  - HYPOTHYROIDISM [None]
  - MICTURITION DISORDER [None]
  - NAUSEA [None]
  - THYROID FUNCTION TEST ABNORMAL [None]
  - VOMITING [None]
